FAERS Safety Report 5490992-4 (Version None)
Quarter: 2007Q4

REPORT INFORMATION
  Report Type: 
  Country: None (occurrence: None)
  Receive Date: 20071019
  Receipt Date: 20071009
  Transmission Date: 20080405
  Serious: Yes (Other)
  Sender: FDA-Public Use
  Company Number: JP-PFIZER INC-2007083298

PATIENT
  Age: 73 Year
  Sex: Male

DRUGS (2)
  1. XALATAN [Suspect]
     Indication: GLAUCOMA
     Route: 031
     Dates: start: 20060727, end: 20071002
  2. TIMOPTOL-XE [Concomitant]
     Dates: start: 20021001, end: 20071002

REACTIONS (5)
  - ACCIDENTAL EXPOSURE [None]
  - CORNEAL DISORDER [None]
  - EYE PAIN [None]
  - HERPES VIRUS INFECTION [None]
  - PHARMACEUTICAL PRODUCT COMPLAINT [None]
